FAERS Safety Report 9754376 (Version 1)
Quarter: 2013Q4

REPORT INFORMATION
  Report Type: Spontaneous
  Country: CA (occurrence: None)
  Receive Date: 20131211
  Receipt Date: 20131211
  Transmission Date: 20140711
  Serious: Yes (Death)
  Sender: FDA-Public Use
  Company Number: UTC-017811

PATIENT
  Age: 60 Year
  Sex: Male

DRUGS (1)
  1. REMODULIN [Suspect]
     Indication: PULMONARY ARTERIAL HYPERTENSION
     Dosage: 0.1 UG/KG 1IN 1 MIN
     Route: 058
     Dates: start: 20110429

REACTIONS (4)
  - Device computer issue [None]
  - Pulmonary arterial hypertension [None]
  - Condition aggravated [None]
  - Underdose [None]
